FAERS Safety Report 26072277 (Version 1)
Quarter: 2025Q4

REPORT INFORMATION
  Report Type: Report from Study
  Country: US (occurrence: US)
  Receive Date: 20251120
  Receipt Date: 20251120
  Transmission Date: 20260117
  Serious: Yes (Other)
  Sender: NOVO NORDISK
  Company Number: US-NOVOPROD-1469525

PATIENT
  Sex: Male

DRUGS (2)
  1. OZEMPIC [Suspect]
     Active Substance: SEMAGLUTIDE
     Indication: Diabetes mellitus
     Dosage: UNK
  2. NOVOLIN 70/30 [Suspect]
     Active Substance: INSULIN HUMAN
     Indication: Diabetes mellitus
     Dosage: 50 IU, BID (BEFORE MEALS)
     Route: 058

REACTIONS (5)
  - Neuropathy peripheral [Unknown]
  - Blood glucose increased [Unknown]
  - Myocardial infarction [Unknown]
  - Asthenia [Unknown]
  - Pain in extremity [Unknown]
